FAERS Safety Report 16450098 (Version 1)
Quarter: 2019Q3

REPORT INFORMATION
  Report Type: Spontaneous
  Country: US (occurrence: US)
  Receive Date: 20190618
  Receipt Date: 20190618
  Transmission Date: 20191004
  Serious: Yes (Other)
  Sender: FDA-Public Use
  Company Number: None

PATIENT
  Age: 33 Year
  Sex: Female

DRUGS (4)
  1. IBUPROFEN 800 MG [Concomitant]
     Active Substance: IBUPROFEN
  2. METOPROLOL SUCCINATE. [Suspect]
     Active Substance: METOPROLOL SUCCINATE
     Indication: ARRHYTHMIA
     Route: 048
  3. OMEPRAZOLE 40 MG [Concomitant]
     Active Substance: OMEPRAZOLE
  4. ALPRAZOLAM 0.5 MG [Concomitant]
     Active Substance: ALPRAZOLAM

REACTIONS (2)
  - Hypotension [None]
  - Chest discomfort [None]
